FAERS Safety Report 6262489-5 (Version None)
Quarter: 2009Q3

REPORT INFORMATION
  Report Type: 
  Country: None (occurrence: None)
  Receive Date: 20090709
  Receipt Date: 20090629
  Transmission Date: 20100115
  Serious: Yes (Death)
  Sender: FDA-Public Use
  Company Number: GB-TEVA-200755ISR

PATIENT
  Age: 63 Year
  Sex: Female

DRUGS (5)
  1. CARBAMAZEPINE [Suspect]
     Dates: start: 20090312
  2. CARBAMAZEPINE [Suspect]
     Dates: end: 20090311
  3. LEVETIRACETAM [Suspect]
  4. TOPIRAMATE [Suspect]
  5. LACOSAMIDE [Suspect]
     Dates: start: 20090312

REACTIONS (4)
  - CHRONIC OBSTRUCTIVE PULMONARY DISEASE [None]
  - DEATH [None]
  - DYSPNOEA [None]
  - HYPONATRAEMIA [None]
